FAERS Safety Report 18400378 (Version 1)
Quarter: 2020Q4

REPORT INFORMATION
  Report Type: Spontaneous
  Country: US (occurrence: US)
  Receive Date: 20201019
  Receipt Date: 20201019
  Transmission Date: 20210114
  Serious: No
  Sender: FDA-Public Use
  Company Number: US-ALLERGAN-1943292US

PATIENT
  Sex: Female

DRUGS (10)
  1. CARVEDILOL. [Concomitant]
     Active Substance: CARVEDILOL
  2. CLONAZEPAM. [Concomitant]
     Active Substance: CLONAZEPAM
  3. VRAYLAR [Suspect]
     Active Substance: CARIPRAZINE
     Indication: DEPRESSION
     Dosage: 1.5 MG, QD
     Route: 048
     Dates: start: 20190808, end: 20190922
  4. QUETIAPINE. [Concomitant]
     Active Substance: QUETIAPINE
  5. ATORVASTATIN [Concomitant]
     Active Substance: ATORVASTATIN
  6. IMODIUM [Concomitant]
     Active Substance: LOPERAMIDE HYDROCHLORIDE
  7. OMEPRAZOLE. [Concomitant]
     Active Substance: OMEPRAZOLE
  8. TRAZODONE [Concomitant]
     Active Substance: TRAZODONE HYDROCHLORIDE
  9. VRAYLAR [Suspect]
     Active Substance: CARIPRAZINE
     Indication: BIPOLAR I DISORDER
     Dosage: UNK, 1.5MG-3 MG
     Route: 048
     Dates: start: 20190711, end: 20190725
  10. GABAPENTIN. [Concomitant]
     Active Substance: GABAPENTIN

REACTIONS (1)
  - Gingival pain [Recovered/Resolved]
